FAERS Safety Report 24780489 (Version 1)
Quarter: 2024Q4

REPORT INFORMATION
  Report Type: Other
  Country: CA (occurrence: CA)
  Receive Date: 20241227
  Receipt Date: 20241227
  Transmission Date: 20250115
  Serious: Yes (Congenital Anomaly)
  Sender: BIOCON
  Company Number: CA-BIOCON BIOLOGICS LIMITED-BBL2024009456

PATIENT

DRUGS (1)
  1. ADALIMUMAB [Suspect]
     Active Substance: ADALIMUMAB
     Indication: Inflammatory bowel disease
     Dosage: 40 MILLIGRAM, Q2W, (SOLUTION SUBCUTANEOUS)
     Route: 064

REACTIONS (3)
  - Multiple congenital abnormalities [Unknown]
  - Foetal exposure during pregnancy [Unknown]
  - Off label use [Unknown]
